FAERS Safety Report 25545391 (Version 2)
Quarter: 2025Q4

REPORT INFORMATION
  Report Type: Spontaneous
  Country: US (occurrence: US)
  Receive Date: 20250711
  Receipt Date: 20251002
  Transmission Date: 20260118
  Serious: Yes (Other)
  Sender: PFIZER
  Company Number: US-PFIZER INC-202500140114

PATIENT
  Age: 50 Year
  Sex: Female
  Weight: 93.44 kg

DRUGS (3)
  1. LEVOXYL [Suspect]
     Active Substance: LEVOTHYROXINE SODIUM
     Indication: Autoimmune thyroiditis
     Dosage: 125 UG, 1X/DAY (ONE TABLET ONCE A DAY EVERY MORNING BEFORE EATING)
     Route: 048
  2. LEVOXYL [Suspect]
     Active Substance: LEVOTHYROXINE SODIUM
     Indication: Hypothyroidism
  3. CLARITIN [Concomitant]
     Active Substance: LORATADINE
     Indication: Hypersensitivity
     Dosage: 10 MG, ONE TABLET EVERY DAY IN AFTERNOON
     Dates: start: 2000

REACTIONS (19)
  - Systemic lupus erythematosus [Unknown]
  - Chronic kidney disease [Unknown]
  - Renal haemorrhage [Unknown]
  - Manufacturing materials contamination [Unknown]
  - Product odour abnormal [Unknown]
  - Product taste abnormal [Unknown]
  - Russell^s viper venom time abnormal [Unknown]
  - Coagulopathy [Unknown]
  - Haemorrhage [Unknown]
  - Vitamin D deficiency [Unknown]
  - Flushing [Not Recovered/Not Resolved]
  - Diarrhoea [Not Recovered/Not Resolved]
  - Condition aggravated [Unknown]
  - Illness [Not Recovered/Not Resolved]
  - Visual impairment [Unknown]
  - Decreased appetite [Unknown]
  - Defaecation urgency [Unknown]
  - Dysgeusia [Unknown]
  - Reaction to excipient [Unknown]

NARRATIVE: CASE EVENT DATE: 20250101
